FAERS Safety Report 14478353 (Version 12)
Quarter: 2020Q2

REPORT INFORMATION
  Report Type: Report from Study
  Country: None (occurrence: US)
  Receive Date: 20180202
  Receipt Date: 20200520
  Transmission Date: 20200713
  Serious: Yes (Other)
  Sender: FDA-Public Use
  Company Number: US-ABBVIE-18K-163-2239113-00

PATIENT
  Age: 55 Year
  Sex: Female
  Weight: 75.36 kg

DRUGS (12)
  1. HUMIRA [Suspect]
     Active Substance: ADALIMUMAB
     Route: 058
     Dates: start: 201801, end: 201803
  2. PNEUMONIA SHOT [Concomitant]
     Active Substance: PNEUMOCOCCAL VACCINE POLYVALENT
     Indication: PRODUCT USED FOR UNKNOWN INDICATION
     Dates: start: 201712, end: 201712
  3. HUMIRA [Suspect]
     Active Substance: ADALIMUMAB
     Dosage: CITRATE FREE
     Route: 058
     Dates: start: 201805
  4. METHOTREXATE. [Suspect]
     Active Substance: METHOTREXATE
     Indication: PRODUCT USED FOR UNKNOWN INDICATION
     Dosage: INCREASE DOSAGE FROM BIWEEKLY TO WEEKLY.
     Route: 065
     Dates: end: 2018
  5. LISINOPRIL. [Concomitant]
     Active Substance: LISINOPRIL
     Indication: HYPERTENSION
  6. METHOTREXATE. [Suspect]
     Active Substance: METHOTREXATE
     Route: 065
     Dates: start: 2018
  7. PRILOSEC [Suspect]
     Active Substance: OMEPRAZOLE MAGNESIUM
     Indication: PRODUCT USED FOR UNKNOWN INDICATION
     Route: 065
  8. HCTZ [Concomitant]
     Active Substance: HYDROCHLOROTHIAZIDE
     Indication: HYPERTENSION
  9. HUMIRA [Suspect]
     Active Substance: ADALIMUMAB
     Route: 058
     Dates: start: 201710, end: 201712
  10. HUMIRA [Suspect]
     Active Substance: ADALIMUMAB
     Indication: ANKYLOSING SPONDYLITIS
     Route: 058
     Dates: start: 2015, end: 201707
  11. CARBAMAZEPINE. [Concomitant]
     Active Substance: CARBAMAZEPINE
     Indication: EPILEPSY
  12. PNEUMONIA SHOT [Concomitant]
     Active Substance: PNEUMOCOCCAL VACCINE POLYVALENT
     Dates: start: 201810

REACTIONS (41)
  - Adnexal torsion [Recovered/Resolved]
  - Surgical failure [Unknown]
  - Pleurisy [Recovered/Resolved]
  - Clavicle fracture [Recovered/Resolved]
  - Femur fracture [Unknown]
  - Drug ineffective [Unknown]
  - Limb injury [Recovering/Resolving]
  - Fall [Recovering/Resolving]
  - Tendon rupture [Recovered/Resolved]
  - Breast haemorrhage [Not Recovered/Not Resolved]
  - Hip arthroplasty [Unknown]
  - Malaise [Unknown]
  - Arthralgia [Unknown]
  - Injection site pain [Recovered/Resolved]
  - Gastric disorder [Recovering/Resolving]
  - Drug interaction [Recovering/Resolving]
  - Ovarian disorder [Recovered/Resolved]
  - Joint dislocation [Unknown]
  - Post procedural infection [Unknown]
  - Bone development abnormal [Recovering/Resolving]
  - Pelvic mass [Recovered/Resolved]
  - Surgical failure [Recovering/Resolving]
  - Tendonitis [Recovering/Resolving]
  - Ovarian neoplasm [Recovered/Resolved]
  - Tendon rupture [Recovering/Resolving]
  - Inflammation [Unknown]
  - Fall [Unknown]
  - Rash [Not Recovered/Not Resolved]
  - Hip surgery [Unknown]
  - Rotator cuff syndrome [Recovering/Resolving]
  - Iritis [Recovered/Resolved]
  - Device loosening [Unknown]
  - Hip fracture [Recovering/Resolving]
  - Road traffic accident [Recovering/Resolving]
  - Tendon rupture [Unknown]
  - Clavicle fracture [Recovering/Resolving]
  - Iritis [Recovered/Resolved]
  - Fall [Recovered/Resolved]
  - Mammary duct ectasia [Not Recovered/Not Resolved]
  - Limb operation [Recovering/Resolving]
  - Limb injury [Unknown]

NARRATIVE: CASE EVENT DATE: 2017
